FAERS Safety Report 25737358 (Version 1)
Quarter: 2025Q3

REPORT INFORMATION
  Report Type: Report from Study
  Country: US (occurrence: US)
  Receive Date: 20250828
  Receipt Date: 20250828
  Transmission Date: 20251021
  Serious: Yes (Hospitalization, Other)
  Sender: EISAI
  Company Number: US-Eisai-EC-2025-195567

PATIENT
  Age: 72 Year
  Sex: Male
  Weight: 96 kg

DRUGS (19)
  1. LECANEMAB [Suspect]
     Active Substance: LECANEMAB
     Indication: Dementia Alzheimer^s type
     Route: 042
     Dates: start: 20240523
  2. NITROGLYCERIN [Concomitant]
     Active Substance: NITROGLYCERIN
     Indication: Musculoskeletal chest pain
     Route: 060
     Dates: start: 201108
  3. ASPIRIN [Concomitant]
     Active Substance: ASPIRIN
     Indication: Prophylaxis
     Route: 048
     Dates: start: 201108
  4. CETIRIZINE HYDROCHLORIDE [Concomitant]
     Active Substance: CETIRIZINE HYDROCHLORIDE
     Indication: Asthma
     Route: 048
     Dates: start: 201108
  5. INSULIN GLARGINE [Concomitant]
     Active Substance: INSULIN GLARGINE
     Route: 030
     Dates: start: 201108
  6. DRONEDARONE [Concomitant]
     Active Substance: DRONEDARONE
     Route: 048
     Dates: start: 201212
  7. METOPROLOL [Concomitant]
     Active Substance: METOPROLOL
     Route: 048
     Dates: start: 201212
  8. TIZANIDINE [Concomitant]
     Active Substance: TIZANIDINE
     Indication: Neck pain
     Route: 048
     Dates: start: 201403
  9. DONEPEZIL [Concomitant]
     Active Substance: DONEPEZIL
     Indication: Cognitive disorder
     Route: 048
     Dates: start: 201702
  10. PANTOPRAZOLE [Concomitant]
     Active Substance: PANTOPRAZOLE
     Indication: Gastrooesophageal reflux disease
     Route: 048
     Dates: start: 201504
  11. INSULIN LISPRO [Concomitant]
     Active Substance: INSULIN LISPRO
     Route: 058
     Dates: start: 201612
  12. TAMSULOSIN [Concomitant]
     Active Substance: TAMSULOSIN
     Indication: Benign prostatic hyperplasia
     Route: 048
     Dates: start: 201903
  13. ROSUVASTATIN [Concomitant]
     Active Substance: ROSUVASTATIN
     Route: 048
     Dates: start: 202011
  14. MONTELUKAST [Concomitant]
     Active Substance: MONTELUKAST
     Indication: Asthma
     Route: 048
     Dates: start: 202112
  15. MEMANTINE [Concomitant]
     Active Substance: MEMANTINE
     Indication: Cognitive disorder
     Route: 048
     Dates: start: 202209
  16. PREGABALIN [Concomitant]
     Active Substance: PREGABALIN
     Indication: Diabetic neuropathy
     Route: 048
     Dates: start: 202302
  17. TIRZEPATIDE [Concomitant]
     Active Substance: TIRZEPATIDE
     Route: 058
     Dates: start: 202405
  18. DEXAMETHASONE SODIUM PHOSPHATE [Concomitant]
     Active Substance: DEXAMETHASONE SODIUM PHOSPHATE
     Indication: Cognitive disorder
     Dates: start: 202406
  19. OXYCODONE [Concomitant]
     Active Substance: OXYCODONE
     Indication: Erectile dysfunction
     Route: 048
     Dates: start: 202409, end: 202409

REACTIONS (1)
  - Urinary tract infection [Recovered/Resolved]

NARRATIVE: CASE EVENT DATE: 20250606
